FAERS Safety Report 17159004 (Version 1)
Quarter: 2019Q4

REPORT INFORMATION
  Report Type: Spontaneous
  Country: DE (occurrence: DE)
  Receive Date: 20191216
  Receipt Date: 20191216
  Transmission Date: 20200122
  Serious: Yes (Hospitalization)
  Sender: FDA-Public Use
  Company Number: DE-PFIZER INC-2019536070

PATIENT
  Age: 59 Year
  Sex: Male

DRUGS (17)
  1. SERTRALINE HCL [Suspect]
     Active Substance: SERTRALINE HYDROCHLORIDE
     Indication: MAJOR DEPRESSION
     Dosage: 125 MG, UNK
     Route: 065
     Dates: end: 20190402
  2. TRAZODONE [Suspect]
     Active Substance: TRAZODONE HYDROCHLORIDE
     Dosage: 100 MG, UNK
     Route: 065
     Dates: start: 20190402, end: 20190414
  3. RISPERIDONE. [Suspect]
     Active Substance: RISPERIDONE
     Dosage: 1 MG, UNK
     Route: 065
     Dates: start: 20190424, end: 20190426
  4. TRAZODONE [Suspect]
     Active Substance: TRAZODONE HYDROCHLORIDE
     Dosage: 125 MG, UNK
     Route: 065
     Dates: start: 20190415, end: 20190423
  5. SERTRALINE HCL [Suspect]
     Active Substance: SERTRALINE HYDROCHLORIDE
     Dosage: 100 MG, UNK
     Route: 065
     Dates: start: 20190403, end: 20190415
  6. TRAZODONE [Suspect]
     Active Substance: TRAZODONE HYDROCHLORIDE
     Indication: MAJOR DEPRESSION
     Dosage: 25-100 MG
     Route: 065
     Dates: start: 20190321, end: 20190401
  7. PROMETHAZINE [Suspect]
     Active Substance: PROMETHAZINE HYDROCHLORIDE
     Dosage: 150 MG, UNK
     Route: 065
     Dates: start: 20190423, end: 20190426
  8. ZOPICLONE [Suspect]
     Active Substance: ZOPICLONE
     Indication: MAJOR DEPRESSION
     Dosage: 7.5 MG, UNK
     Route: 065
     Dates: start: 20190318, end: 20190331
  9. TRAZODONE [Suspect]
     Active Substance: TRAZODONE HYDROCHLORIDE
     Dosage: UNK
     Route: 065
     Dates: start: 20190424, end: 20190426
  10. ZOPICLONE [Suspect]
     Active Substance: ZOPICLONE
     Dosage: 3.75 MG, UNK
     Route: 065
     Dates: start: 20190401, end: 20190426
  11. PANTOPRAZOLE [Concomitant]
     Active Substance: PANTOPRAZOLE
     Dosage: UNK (20)
  12. RISPERIDONE. [Suspect]
     Active Substance: RISPERIDONE
     Indication: MAJOR DEPRESSION
     Dosage: 1 MG, UNK
     Route: 065
     Dates: start: 20190318, end: 20190416
  13. PROMETHAZINE [Suspect]
     Active Substance: PROMETHAZINE HYDROCHLORIDE
     Indication: MAJOR DEPRESSION
     Dosage: 25 MG, UNK
     Route: 065
     Dates: start: 20190403, end: 20190414
  14. RISPERIDONE. [Suspect]
     Active Substance: RISPERIDONE
     Dosage: 2 MG, UNK
     Route: 065
     Dates: start: 20190417, end: 20190423
  15. SERTRALINE HCL [Suspect]
     Active Substance: SERTRALINE HYDROCHLORIDE
     Dosage: 150 MG, UNK
     Route: 065
     Dates: start: 20190416, end: 20190426
  16. PROMETHAZINE [Suspect]
     Active Substance: PROMETHAZINE HYDROCHLORIDE
     Dosage: 50 MG, UNK
     Route: 065
     Dates: start: 20190415, end: 20190422
  17. BISOPROLOL [Concomitant]
     Active Substance: BISOPROLOL
     Dosage: 2.5 MG, UNK

REACTIONS (2)
  - Akathisia [Recovered/Resolved]
  - Obsessive thoughts [Recovered/Resolved]

NARRATIVE: CASE EVENT DATE: 20190418
